FAERS Safety Report 8618790-0 (Version None)
Quarter: 2012Q3

REPORT INFORMATION
  Report Type: 
  Country: None (occurrence: None)
  Receive Date: 20120824
  Receipt Date: 20120820
  Transmission Date: 20120928
  Serious: Yes (Hospitalization, Other)
  Sender: FDA-Public Use
  Company Number: ES-PFIZER INC-2012185105

PATIENT
  Age: 48 Year
  Sex: Male
  Weight: 75 kg

DRUGS (2)
  1. MEROPENEM [Concomitant]
     Indication: PROSTATE INFECTION
     Dosage: 1 G, 3X/DAY
     Route: 042
     Dates: start: 20120726
  2. CRIZOTINIB [Suspect]
     Indication: LUNG NEOPLASM MALIGNANT
     Dosage: 250 MG, 2X/DAY
     Route: 048
     Dates: start: 20120724, end: 20120727

REACTIONS (1)
  - MYOCARDIAL ISCHAEMIA [None]
